FAERS Safety Report 8888634 (Version 9)
Quarter: 2013Q2

REPORT INFORMATION
  Report Type: Spontaneous
  Country: US (occurrence: US)
  Receive Date: 20121106
  Receipt Date: 20130411
  Transmission Date: 20140414
  Serious: Yes (Hospitalization, Disabling, Other)
  Sender: FDA-Public Use
  Company Number: US-009507513-1202USA01295

PATIENT
  Sex: Female
  Weight: 84.35 kg

DRUGS (5)
  1. FOSAMAX [Suspect]
     Indication: OSTEOPENIA
     Dosage: 10 MG, QD
     Route: 048
     Dates: start: 1995
  2. FOSAMAX [Suspect]
     Dosage: 70 MG, QW
     Route: 048
     Dates: end: 200712
  3. ALENDRONATE SODIUM [Suspect]
     Indication: OSTEOPENIA
     Dosage: 70 MG, QW
     Route: 048
     Dates: start: 200809, end: 201007
  4. ALENDRONATE SODIUM [Suspect]
     Indication: BONE DISORDER
  5. CALCIUM (UNSPECIFIED) [Concomitant]
     Dosage: 1200 MG, UNK
     Route: 048
     Dates: start: 1990

REACTIONS (52)
  - Femur fracture [Unknown]
  - Fall [Unknown]
  - Open reduction of fracture [Unknown]
  - Femur fracture [Unknown]
  - Disability [Not Recovered/Not Resolved]
  - Hip fracture [Unknown]
  - Fall [Unknown]
  - Pain [Unknown]
  - Internal fixation of fracture [Unknown]
  - Spinal compression fracture [Unknown]
  - Back pain [Not Recovered/Not Resolved]
  - Paraesthesia [Unknown]
  - Spinal fracture [Unknown]
  - Hypertension [Not Recovered/Not Resolved]
  - Arthritis [Unknown]
  - Gastric disorder [Unknown]
  - Vertebroplasty [Unknown]
  - Intervertebral disc protrusion [Unknown]
  - Spinal compression fracture [Unknown]
  - Respiratory disorder [Unknown]
  - Foot deformity [Not Recovered/Not Resolved]
  - Anaemia [Unknown]
  - Sacroiliitis [Unknown]
  - Myofascial pain syndrome [Unknown]
  - Skin ulcer [Unknown]
  - Depression [Unknown]
  - Abdominal hernia repair [Unknown]
  - Cataract operation [Unknown]
  - Debridement [Unknown]
  - Medical device implantation [Unknown]
  - Gait disturbance [Unknown]
  - Gastroenteritis [Unknown]
  - Osteoporosis [Unknown]
  - Osteomyelitis [Not Recovered/Not Resolved]
  - Insomnia [Unknown]
  - Deep vein thrombosis [Unknown]
  - Gastrointestinal disorder [Unknown]
  - Radius fracture [Unknown]
  - Rib fracture [Recovered/Resolved]
  - Spinal osteoarthritis [Not Recovered/Not Resolved]
  - Lumbar spinal stenosis [Not Recovered/Not Resolved]
  - Osteoarthritis [Unknown]
  - Diverticulum [Unknown]
  - Surgery [Unknown]
  - Radicular pain [Unknown]
  - Limb asymmetry [Unknown]
  - Spinal compression fracture [Unknown]
  - Hypertrophy [Unknown]
  - Asthenia [Unknown]
  - Gastrooesophageal reflux disease [Not Recovered/Not Resolved]
  - Back pain [Unknown]
  - Pruritus [Unknown]
